FAERS Safety Report 17558624 (Version 4)
Quarter: 2020Q2

REPORT INFORMATION
  Report Type: Spontaneous
  Country: JP (occurrence: JP)
  Receive Date: 20200318
  Receipt Date: 20200625
  Transmission Date: 20200713
  Serious: Yes (Death, Other)
  Sender: FDA-Public Use
  Company Number: JP-009507513-2003JPN001100J

PATIENT
  Age: 75 Year
  Sex: Male
  Weight: 65 kg

DRUGS (11)
  1. LIMAPROST ALFADEX [Concomitant]
     Active Substance: LIMAPROST
     Dosage: UNK
     Route: 065
  2. REBAMIPIDE [Concomitant]
     Active Substance: REBAMIPIDE
     Dosage: UNK
     Route: 048
  3. MAGMITT [Concomitant]
     Active Substance: MAGNESIUM OXIDE
     Dosage: UNK
     Route: 048
  4. CARBOPLATIN. [Concomitant]
     Active Substance: CARBOPLATIN
     Indication: NON-SMALL CELL LUNG CANCER
     Dosage: AUC6, Q3W
     Route: 051
     Dates: start: 20200128, end: 20200212
  5. FAMOTIDINE. [Concomitant]
     Active Substance: FAMOTIDINE
     Dosage: UNK
     Route: 051
  6. CALONAL [Concomitant]
     Active Substance: ACETAMINOPHEN
     Dosage: UNK
     Route: 048
  7. METHYCOBAL [Concomitant]
     Active Substance: METHYLCOBALAMIN
     Dosage: UNK
     Route: 048
  8. KEYTRUDA [Suspect]
     Active Substance: PEMBROLIZUMAB
     Indication: NON-SMALL CELL LUNG CANCER
     Dosage: 200 MILLIGRAM, Q3W
     Route: 041
     Dates: start: 20200128, end: 20200128
  9. ABRAXANE [Concomitant]
     Active Substance: PACLITAXEL
     Indication: NON-SMALL CELL LUNG CANCER
     Dosage: 100 MILLIGRAM/SQ. METER, QW
     Route: 051
     Dates: start: 20200128, end: 20200212
  10. OXYCODONE HYDROCHLORIDE. [Concomitant]
     Active Substance: OXYCODONE HYDROCHLORIDE
     Dosage: UNK
     Route: 048
  11. LOXOPROFEN [Concomitant]
     Active Substance: LOXOPROFEN
     Dosage: UNK
     Route: 048

REACTIONS (2)
  - Lung disorder [Fatal]
  - Pneumonia [Fatal]

NARRATIVE: CASE EVENT DATE: 20200210
